FAERS Safety Report 4907112-4 (Version None)
Quarter: 2006Q1

REPORT INFORMATION
  Report Type: 
  Country: None (occurrence: None)
  Receive Date: 20060206
  Receipt Date: 20060125
  Transmission Date: 20060701
  Serious: Yes (Hospitalization)
  Sender: FDA-Public Use
  Company Number: 2006013606

PATIENT
  Age: 70 Year
  Sex: Male

DRUGS (11)
  1. CELECOXIB (CELECOXIB) [Suspect]
     Indication: ILL-DEFINED DISORDER
     Dosage: (1 D),
  2. GALANTAMINE HYDROCHLORIDE (GALANTAMINE HYDROCHLORIDE) [Suspect]
     Indication: ILL-DEFINED DISORDER
     Dosage: 16 MG (8 MG, 2 IN 1 D),
     Dates: start: 20040401
  3. QUININE SULFATE [Suspect]
     Indication: ILL-DEFINED DISORDER
     Dosage: 300 MG (300 MG, NOCTE INTERVAL:  EVERY DAY),
  4. CO-DYDRAMOL (DIHYDROCODEINE BITARTRATE, PARACETAMOL) [Suspect]
     Indication: ILL-DEFINED DISORDER
     Dosage: (3 IN 1 D),
  5. NIFEDIPINE [Suspect]
     Indication: ILL-DEFINED DISORDER
     Dosage: 20 MG (20 MG, 1 IN 1 D),
  6. SULFASALAZINE [Suspect]
     Indication: ILL-DEFINED DISORDER
     Dosage: 2500 MG (500 MG, 5 IN 1 D),
  7. SIMVASTATIN [Suspect]
     Indication: ILL-DEFINED DISORDER
     Dosage: 40 MG (1 IN 1 D),
  8. TAMSULOSIN HCL [Concomitant]
  9. ESOMEPRAZOLE (ESOMEPRAZOLE) [Concomitant]
  10. ASPIRIN [Concomitant]
  11. ATENOLOL [Concomitant]

REACTIONS (8)
  - ALANINE AMINOTRANSFERASE INCREASED [None]
  - ASPARTATE AMINOTRANSFERASE INCREASED [None]
  - BLOOD ALKALINE PHOSPHATASE INCREASED [None]
  - BLOOD LACTATE DEHYDROGENASE INCREASED [None]
  - CHILLS [None]
  - GAMMA-GLUTAMYLTRANSFERASE INCREASED [None]
  - JAUNDICE [None]
  - PYREXIA [None]
